FAERS Safety Report 8814221 (Version 1)
Quarter: 2012Q4

REPORT INFORMATION
  Report Type: Spontaneous
  Country: US (occurrence: None)
  Receive Date: 20120926
  Receipt Date: 20120926
  Transmission Date: 20130627
  Serious: Yes (Hospitalization)
  Sender: FDA-Public Use
  Company Number: None

PATIENT
  Age: 50 Year
  Sex: Female
  Weight: 89.81 kg

DRUGS (9)
  1. TEMOZOLOMIDE [Suspect]
     Indication: GLIOBLASTOMA MULTIFORME
     Route: 048
     Dates: start: 20120820, end: 20120823
  2. BUPROPRION XL [Concomitant]
  3. KEPPRA [Concomitant]
  4. LORAZEPAM [Concomitant]
  5. ONDANSETRON [Concomitant]
  6. OXYCODONE [Concomitant]
  7. OXYCONTIN XR [Concomitant]
  8. ZOLPIDEM [Concomitant]
  9. ESTRADIOL [Concomitant]

REACTIONS (3)
  - VIIth nerve paralysis [None]
  - Drooling [None]
  - Convulsion [None]
